FAERS Safety Report 19163843 (Version 2)
Quarter: 2021Q2

REPORT INFORMATION
  Report Type: Report from Study
  Country: US (occurrence: US)
  Receive Date: 20210421
  Receipt Date: 20210528
  Transmission Date: 20210717
  Serious: No
  Sender: FDA-Public Use
  Company Number: US-B.I. PHARMACEUTICALS,INC./RIDGEFIELD-2021-BI-096117

PATIENT
  Age: 81 Year
  Sex: Female

DRUGS (2)
  1. OFEV [Suspect]
     Active Substance: NINTEDANIB
     Indication: PULMONARY FIBROSIS
     Dosage: 150MG TWICE A DAY
     Route: 048
     Dates: start: 20210318, end: 20210401
  2. OFEV [Suspect]
     Active Substance: NINTEDANIB
     Route: 048

REACTIONS (3)
  - Abdominal pain upper [Not Recovered/Not Resolved]
  - Gastric disorder [Recovering/Resolving]
  - Lung disorder [Unknown]

NARRATIVE: CASE EVENT DATE: 20210318
